FAERS Safety Report 4781008-3 (Version None)
Quarter: 2005Q3

REPORT INFORMATION
  Report Type: 
  Country: None (occurrence: None)
  Receive Date: 20050927
  Receipt Date: 20050927
  Transmission Date: 20060218
  Serious: No
  Sender: FDA-Public Use
  Company Number: None

PATIENT
  Age: 25 Year
  Sex: Male
  Weight: 63.5 kg

DRUGS (4)
  1. VANCOMYCIN [Suspect]
     Indication: URINARY TRACT INFECTION
     Dosage: 1 GRAM   DAILY  IV
     Route: 042
     Dates: start: 20050905, end: 20050906
  2. NIFEDIPINE [Concomitant]
  3. COLACED [Concomitant]
  4. PB. [Concomitant]

REACTIONS (2)
  - ERYTHEMA [None]
  - PRURITUS [None]
